FAERS Safety Report 24904080 (Version 1)
Quarter: 2025Q1

REPORT INFORMATION
  Report Type: Spontaneous
  Country: US (occurrence: US)
  Receive Date: 20250130
  Receipt Date: 20250130
  Transmission Date: 20250408
  Serious: Yes (Other)
  Sender: TEVA
  Company Number: US-TEVA-VS-3289728

PATIENT
  Age: 68 Year
  Sex: Male

DRUGS (1)
  1. AUSTEDO [Suspect]
     Active Substance: DEUTETRABENAZINE
     Indication: Product used for unknown indication
     Dosage: 12MG TWO TABLETS TWICE A DAY
     Route: 065
     Dates: start: 2024

REACTIONS (1)
  - Bedridden [Not Recovered/Not Resolved]
